FAERS Safety Report 4533267-X (Version None)
Quarter: 2004Q4

REPORT INFORMATION
  Report Type: 
  Country: None (occurrence: None)
  Receive Date: 20041221
  Receipt Date: 20041215
  Transmission Date: 20050328
  Serious: Yes (Other)
  Sender: FDA-Public Use
  Company Number: DE-BRISTOL-MYERS SQUIBB COMPANY-12795720

PATIENT

DRUGS (3)
  1. CARBOPLATIN [Suspect]
     Route: 042
  2. ETOPOSIDE [Suspect]
     Route: 042
  3. VINCRISTINE [Suspect]
     Route: 042

REACTIONS (1)
  - RENAL IMPAIRMENT [None]
